FAERS Safety Report 7602439-X (Version None)
Quarter: 2011Q3

REPORT INFORMATION
  Report Type: 
  Country: None (occurrence: None)
  Receive Date: 20110712
  Receipt Date: 20110705
  Transmission Date: 20111222
  Serious: No
  Sender: FDA-Public Use
  Company Number: US-BIOGENIDEC-2011BI024902

PATIENT
  Sex: Female

DRUGS (2)
  1. TYSABRI [Suspect]
     Indication: MULTIPLE SCLEROSIS
     Route: 042
     Dates: start: 20090807
  2. TYSABRI [Suspect]
     Route: 042
     Dates: start: 20080714, end: 20080916

REACTIONS (6)
  - SENSATION OF HEAVINESS [None]
  - IRRITABLE BOWEL SYNDROME [None]
  - INFLUENZA [None]
  - ARTHRALGIA [None]
  - NEURALGIA [None]
  - HYPOAESTHESIA [None]
